FAERS Safety Report 5680612-8 (Version None)
Quarter: 2008Q1

REPORT INFORMATION
  Report Type: 
  Country: None (occurrence: None)
  Receive Date: 20080326
  Receipt Date: 20071003
  Transmission Date: 20080703
  Serious: No
  Sender: FDA-Public Use
  Company Number: US-BAUSCH-2007BL003587

PATIENT
  Age: 91 Year
  Sex: Male

DRUGS (3)
  1. LEVOBUNOLOL HYDROCHLORIDE [Suspect]
     Indication: GLAUCOMA
     Route: 047
     Dates: start: 19971003, end: 20070303
  2. LEVOBUNOLOL HYDROCHLORIDE [Suspect]
     Route: 047
     Dates: start: 20070304
  3. VITAMINS [Concomitant]

REACTIONS (1)
  - DRUG EFFECT DECREASED [None]
